FAERS Safety Report 19447665 (Version 1)
Quarter: 2021Q2

REPORT INFORMATION
  Report Type: Spontaneous
  Country: US (occurrence: US)
  Receive Date: 20210622
  Receipt Date: 20210622
  Transmission Date: 20210717
  Serious: No
  Sender: FDA-Public Use
  Company Number: US-THERAPEUTICSMD-2021TMD01362

PATIENT
  Sex: Female
  Weight: 53.52 kg

DRUGS (1)
  1. IMVEXXY [Suspect]
     Active Substance: ESTRADIOL
     Indication: VULVOVAGINAL DRYNESS
     Dosage: 10 ?G, 2X/WEEK
     Route: 067
     Dates: start: 202102, end: 20210322

REACTIONS (4)
  - Abdominal pain [Recovered/Resolved]
  - Vaginal discharge [Not Recovered/Not Resolved]
  - Off label use [Recovered/Resolved]
  - Abdominal distension [Recovered/Resolved]

NARRATIVE: CASE EVENT DATE: 2021
